FAERS Safety Report 4583299-0 (Version None)
Quarter: 2005Q1

REPORT INFORMATION
  Report Type: 
  Country: None (occurrence: None)
  Receive Date: 20050125
  Receipt Date: 20041011
  Transmission Date: 20050727
  Serious: No
  Sender: FDA-Public Use
  Company Number: USA040259299

PATIENT
  Age: 79 Year
  Sex: Female
  Weight: 55 kg

DRUGS (4)
  1. FORTEO [Suspect]
     Indication: OSTEOPOROSIS
     Dosage: 20 UG DAY
     Dates: start: 20040130
  2. LANOXIN [Concomitant]
  3. CALCIUM GLUCONATE [Concomitant]
  4. CALCIUM WITH VITAMIN D [Concomitant]

REACTIONS (9)
  - DIZZINESS [None]
  - FALL [None]
  - INJECTION SITE ERYTHEMA [None]
  - INJECTION SITE HAEMORRHAGE [None]
  - INJECTION SITE PAIN [None]
  - MUSCLE SPASMS [None]
  - NASOPHARYNGITIS [None]
  - SCIATICA [None]
  - URINE CALCIUM [None]
